FAERS Safety Report 16844512 (Version 1)
Quarter: 2019Q4

REPORT INFORMATION
  Report Type: Spontaneous
  Country: US (occurrence: US)
  Receive Date: 20190923
  Receipt Date: 20190923
  Transmission Date: 20200122
  Serious: Yes (Hospitalization, Other)
  Sender: FDA-Public Use
  Company Number: None

PATIENT
  Age: 87 Year
  Sex: Female
  Weight: 54 kg

DRUGS (1)
  1. COLCHICINE. [Suspect]
     Active Substance: COLCHICINE
     Indication: CHONDROCALCINOSIS PYROPHOSPHATE
     Dosage: ?          QUANTITY:1 TABLET(S);?
     Route: 048

REACTIONS (39)
  - Confusional state [None]
  - Diarrhoea [None]
  - Muscular weakness [None]
  - Tenderness [None]
  - Fatigue [None]
  - Feeling cold [None]
  - Cold sweat [None]
  - Throat irritation [None]
  - Muscle spasms [None]
  - Muscle atrophy [None]
  - Skin burning sensation [None]
  - Malaise [None]
  - Respiratory rate increased [None]
  - Irregular breathing [None]
  - Overdose [None]
  - Dyspnoea [None]
  - Hypoaesthesia [None]
  - Asthenia [None]
  - Musculoskeletal stiffness [None]
  - Headache [None]
  - Hypopnoea [None]
  - Nausea [None]
  - Abdominal pain upper [None]
  - Pyrexia [None]
  - Cystitis [None]
  - Oropharyngeal pain [None]
  - Swelling [None]
  - Myalgia [None]
  - Chest discomfort [None]
  - Dyspepsia [None]
  - Eye pain [None]
  - Respiratory rate decreased [None]
  - Chills [None]
  - Pain [None]
  - Chest pain [None]
  - Vomiting [None]
  - Pallor [None]
  - Cough [None]
  - Dizziness [None]

NARRATIVE: CASE EVENT DATE: 20190918
